FAERS Safety Report 13942057 (Version 5)
Quarter: 2017Q4

REPORT INFORMATION
  Report Type: Report from Study
  Country: US (occurrence: US)
  Receive Date: 20170907
  Receipt Date: 20171121
  Transmission Date: 20180320
  Serious: Yes (Other)
  Sender: FDA-Public Use
  Company Number: US-PFIZER INC-2017137972

PATIENT
  Age: 71 Year
  Sex: Female
  Weight: 65.3 kg

DRUGS (19)
  1. IBRANCE [Suspect]
     Active Substance: PALBOCICLIB
     Indication: BREAST CANCER METASTATIC
     Dosage: 125 MG, CYCLIC (ONCE PER DAY ON DAYS 1 TO 21, FOLLOWED BY 7 DAYS REST PERIOD)
     Route: 048
     Dates: start: 20170316, end: 20170412
  2. IBRANCE [Suspect]
     Active Substance: PALBOCICLIB
     Dosage: 100 MG, DAILY
     Route: 048
     Dates: start: 20170828, end: 20171020
  3. VITAMIN B12 [Concomitant]
     Active Substance: CYANOCOBALAMIN
     Indication: ANAEMIA VITAMIN B12 DEFICIENCY
     Dosage: UNK, MONTHLY (AS DIRECTED)
     Route: 030
  4. ZOMETA [Concomitant]
     Active Substance: ZOLEDRONIC ACID
     Dosage: 4 MG, SINGLE (4 MG IN SODIUM CHLORIDE 0.9 % 100 ML IVPB, ONCE)
     Route: 042
  5. IBRANCE [Suspect]
     Active Substance: PALBOCICLIB
     Dosage: 100 MG, CYCLIC (DAILY ON DAYS 1 TO 21)
     Route: 048
     Dates: start: 20170503, end: 20170729
  6. ALPHAGAN P [Concomitant]
     Active Substance: BRIMONIDINE TARTRATE
     Dosage: 1 GTT, 3X/DAY
     Route: 047
  7. SYNTHROID [Concomitant]
     Active Substance: LEVOTHYROXINE SODIUM
     Indication: HYPOTHYROIDISM
     Dosage: 75 UG, DAILY
     Route: 048
  8. LEVOTHROID [Concomitant]
     Active Substance: LEVOTHYROXINE SODIUM
     Dosage: 75 UG, DAILY
     Route: 048
  9. FASLODEX [Concomitant]
     Active Substance: FULVESTRANT
     Dosage: 500 MG, EVERY TWO WEEKS X 3 DOSES
     Route: 030
     Dates: start: 20170316
  10. NORCO [Concomitant]
     Active Substance: ACETAMINOPHEN\HYDROCODONE BITARTRATE
     Dosage: 1 DF, 4X/DAY (EVERY 6 (SIX) HOURS AS NEEDED)
     Route: 048
  11. PAXIL [Concomitant]
     Active Substance: PAROXETINE HYDROCHLORIDE
     Dosage: 10 MG, (AS DIRECTED)
     Route: 048
  12. AMBIEN [Concomitant]
     Active Substance: ZOLPIDEM TARTRATE
     Indication: SLEEP DISORDER
     Dosage: 5 MG, AS NEEDED (TAKE 1 TABLET (5 MG TOTAL) BY MOUTH NIGHTLY AS NEEDED FOR UP TO 30 DAYS FOR SLEEP)
     Route: 048
  13. XALATAN [Concomitant]
     Active Substance: LATANOPROST
     Dosage: 1 GTT, 1X/DAY (1 DROP NIGHTLY)
     Route: 047
  14. ZOFRAN [Concomitant]
     Active Substance: ONDANSETRON HYDROCHLORIDE
     Indication: NAUSEA
     Dosage: 8 MG, AS NEEDED (TAKE ONE TABLET EVERY 8-12 HOURS AS NEEDED FOR NAUSEA)
  15. IBRANCE [Suspect]
     Active Substance: PALBOCICLIB
     Dosage: 75 MG, CYCLIC (ON DAY 1-21 )
     Dates: start: 2017
  16. XANAX [Concomitant]
     Active Substance: ALPRAZOLAM
     Indication: SLEEP DISORDER
     Dosage: 0.25 MG, 3X/DAY (TAKE BY MOUTH 3 (THREE) TIMES DAILY AS NEEDED)
     Route: 048
  17. SOMA [Concomitant]
     Active Substance: CARISOPRODOL
     Indication: MUSCLE SPASMS
     Dosage: 350 MG, 4X/DAY ( 4 (FOUR) TIMES DAILY AS NEEDED )
     Route: 048
  18. NACL [Concomitant]
     Active Substance: SODIUM CHLORIDE
     Dosage: 250 ML, SINGLE
     Route: 042
  19. PHENERGAN [Concomitant]
     Active Substance: PROMETHAZINE HYDROCHLORIDE
     Indication: NAUSEA
     Dosage: 25 MG, 4X/DAY (EVERY SIX HOURS AS NEEDED)
     Route: 048

REACTIONS (12)
  - Cytopenia [Unknown]
  - Neutropenia [Recovered/Resolved]
  - Second primary malignancy [Unknown]
  - Rash [Unknown]
  - Haemoglobin decreased [Unknown]
  - Full blood count decreased [Unknown]
  - Neoplasm progression [Unknown]
  - Basal cell carcinoma [Unknown]
  - Oropharyngeal pain [Unknown]
  - Arthralgia [Unknown]
  - Fatigue [Recovering/Resolving]
  - Rhinorrhoea [Unknown]

NARRATIVE: CASE EVENT DATE: 2017
